FAERS Safety Report 14184438 (Version 2)
Quarter: 2017Q4

REPORT INFORMATION
  Report Type: Spontaneous
  Country: IT (occurrence: IT)
  Receive Date: 20171113
  Receipt Date: 20171127
  Transmission Date: 20180321
  Serious: Yes (Other)
  Sender: FDA-Public Use
  Company Number: IT-MYLANLABS-2017M1070446

PATIENT
  Age: 73 Year
  Sex: Male

DRUGS (4)
  1. PREGABALIN. [Concomitant]
     Active Substance: PREGABALIN
     Indication: NEUROPATHY PERIPHERAL
  2. MELPHALAN. [Suspect]
     Active Substance: MELPHALAN
     Indication: PLASMA CELL MYELOMA
     Dosage: 9 MG/M2 CYCLICAL
     Route: 048
     Dates: start: 20170327
  3. BORTEZOMIB [Suspect]
     Active Substance: BORTEZOMIB
     Indication: PLASMA CELL MYELOMA
     Dosage: 1.3 MG/M2 CYCLICAL
     Route: 058
     Dates: start: 20170327, end: 20170424
  4. PREDNISONE. [Suspect]
     Active Substance: PREDNISONE
     Indication: PLASMA CELL MYELOMA
     Dosage: 60 MG/M2 CYCLICAL
     Route: 048

REACTIONS (3)
  - Neutropenia [Unknown]
  - Peripheral sensory neuropathy [Unknown]
  - Constipation [Unknown]

NARRATIVE: CASE EVENT DATE: 20170424
